FAERS Safety Report 8814655 (Version 1)
Quarter: 2012Q4

REPORT INFORMATION
  Report Type: Spontaneous
  Country: IT (occurrence: None)
  Receive Date: 20120926
  Receipt Date: 20120926
  Transmission Date: 20130627
  Serious: Yes (Hospitalization)
  Sender: FDA-Public Use
  Company Number: 2012AP002937

PATIENT
  Age: 62 Year
  Sex: Female

DRUGS (3)
  1. ALENDRONATE [Suspect]
     Route: 048
     Dates: start: 20110201, end: 20120815
  2. NIMESULIDE [Suspect]
     Route: 048
     Dates: start: 20120815, end: 20120815
  3. NEBIVOLOL HYDROCHLORIDE (NEBIVOLOL HYDROCHLORIDE) [Concomitant]

REACTIONS (4)
  - Anaemia [None]
  - Gastric ulcer [None]
  - Erosive oesophagitis [None]
  - Headache [None]
